FAERS Safety Report 13498585 (Version 4)
Quarter: 2017Q2

REPORT INFORMATION
  Report Type: Spontaneous
  Country: US (occurrence: US)
  Receive Date: 20170501
  Receipt Date: 20170626
  Transmission Date: 20170830
  Serious: Yes (Other)
  Sender: FDA-Public Use
  Company Number: US-PFIZER INC-2017181868

PATIENT
  Age: 74 Year
  Sex: Male

DRUGS (3)
  1. SUTENT [Suspect]
     Active Substance: SUNITINIB MALATE
     Indication: METASTATIC RENAL CELL CARCINOMA
     Dosage: 50 MG, CYCLIC, (28 DAYS ON/14 DAYS OFF)
  2. SUTENT [Suspect]
     Active Substance: SUNITINIB MALATE
     Dosage: UNK, CYCLIC
     Dates: end: 20170420
  3. SUTENT [Suspect]
     Active Substance: SUNITINIB MALATE
     Dosage: 37.5 MG, CYCLIC, 28 DAYS ON/14 DAYS OFF
     Dates: start: 201702

REACTIONS (12)
  - Asthenia [Unknown]
  - Blood lactate dehydrogenase increased [Unknown]
  - Decreased appetite [Unknown]
  - Withdrawal syndrome [Unknown]
  - Neoplasm progression [Unknown]
  - Fatigue [Unknown]
  - Blood potassium decreased [Unknown]
  - Muscle spasms [Unknown]
  - Hypokinesia [Unknown]
  - Dysgeusia [Unknown]
  - Skin lesion [Unknown]
  - Lethargy [Unknown]

NARRATIVE: CASE EVENT DATE: 201704
